FAERS Safety Report 16918246 (Version 1)
Quarter: 2019Q4

REPORT INFORMATION
  Report Type: Spontaneous
  Country: GB (occurrence: GB)
  Receive Date: 20191015
  Receipt Date: 20191015
  Transmission Date: 20200122
  Serious: Yes (Life-Threatening)
  Sender: FDA-Public Use
  Company Number: GB-ACCORD-157719

PATIENT
  Age: 19 Year
  Sex: Male

DRUGS (1)
  1. SERTRALINE [Suspect]
     Active Substance: SERTRALINE HYDROCHLORIDE
     Indication: ANXIETY
     Route: 048
     Dates: start: 20190918, end: 20190919

REACTIONS (2)
  - Suicidal ideation [Recovered/Resolved]
  - Alcohol interaction [Unknown]

NARRATIVE: CASE EVENT DATE: 20190919
